FAERS Safety Report 9087489 (Version 3)
Quarter: 2013Q1

REPORT INFORMATION
  Report Type: Spontaneous
  Country: US (occurrence: US)
  Receive Date: 20130217
  Receipt Date: 20130228
  Transmission Date: 20140127
  Serious: Yes (Death)
  Sender: FDA-Public Use
  Company Number: US-JNJFOC-20130207401

PATIENT
  Sex: Female
  Weight: 85.73 kg

DRUGS (1)
  1. XARELTO [Suspect]
     Indication: THROMBOSIS
     Route: 048

REACTIONS (3)
  - Haemorrhage intracranial [Fatal]
  - Off label use [Unknown]
  - Unresponsive to stimuli [None]
